FAERS Safety Report 12986402 (Version 1)
Quarter: 2016Q4

REPORT INFORMATION
  Report Type: Spontaneous
  Country: US (occurrence: US)
  Receive Date: 20161130
  Receipt Date: 20161130
  Transmission Date: 20170207
  Serious: Yes (Other)
  Sender: FDA-Public Use
  Company Number: US-CLINIGEN GROUP PLC/ CLINIGEN HEALTHCARE LTD-E2B_00001569

PATIENT
  Sex: Female

DRUGS (2)
  1. NONE [Concomitant]
     Active Substance: UNSPECIFIED INGREDIENT
     Route: 065
  2. ETHYOL [Suspect]
     Active Substance: AMIFOSTINE
     Indication: LYMPHOPROLIFERATIVE DISORDER
     Dosage: 500 MG 3XWK 3 MONTH(S)
     Route: 042

REACTIONS (2)
  - Hyperthyroidism [Unknown]
  - Thyroiditis [Unknown]

NARRATIVE: CASE EVENT DATE: 1997
